FAERS Safety Report 8068048-6 (Version None)
Quarter: 2012Q1

REPORT INFORMATION
  Report Type: 
  Country: None (occurrence: None)
  Receive Date: 20120124
  Receipt Date: 20110914
  Transmission Date: 20120608
  Serious: No
  Sender: FDA-Public Use
  Company Number: US-AMGEN-USASP2011047494

PATIENT
  Age: 85 Year
  Sex: Female

DRUGS (6)
  1. PROLIA [Suspect]
     Indication: OSTEOPOROSIS POSTMENOPAUSAL
     Dates: start: 20110912
  2. CALCIUM + VIT D [Concomitant]
  3. NAMENDA [Concomitant]
  4. AVAPRO [Concomitant]
  5. SYNTHROID [Concomitant]
  6. PROMETHAZINE [Concomitant]

REACTIONS (3)
  - URTICARIA [None]
  - PRURITUS [None]
  - RASH [None]
